FAERS Safety Report 14268214 (Version 1)
Quarter: 2017Q4

REPORT INFORMATION
  Report Type: Spontaneous
  Country: US (occurrence: US)
  Receive Date: 20171211
  Receipt Date: 20171211
  Transmission Date: 20180321
  Serious: Yes (Other)
  Sender: FDA-Public Use
  Company Number: None

PATIENT
  Age: 62 Year
  Sex: Female

DRUGS (13)
  1. CALCIUM [Concomitant]
     Active Substance: CALCIUM
  2. EPIPEN [Concomitant]
     Active Substance: EPINEPHRINE
  3. ZANTAC [Concomitant]
     Active Substance: RANITIDINE HYDROCHLORIDE
  4. PRILOSEC [Concomitant]
     Active Substance: OMEPRAZOLE MAGNESIUM
  5. HYDROXYZ [Concomitant]
     Active Substance: HYDROXYZINE HYDROCHLORIDE
  6. PROVENTIL [Concomitant]
     Active Substance: ALBUTEROL
  7. CELEBREX [Concomitant]
     Active Substance: CELECOXIB
  8. OCALIVA [Suspect]
     Active Substance: OBETICHOLIC ACID
     Indication: BILIARY CIRRHOSIS PRIMARY
     Route: 048
     Dates: start: 20171122
  9. AMITIZA [Concomitant]
     Active Substance: LUBIPROSTONE
  10. MULTI VIT [Concomitant]
  11. URSIDIOL LIVER MEDICATION URSIDIOL 300MG [Concomitant]
     Active Substance: URSODIOL
  12. ALLEGRA [Concomitant]
     Active Substance: FEXOFENADINE HYDROCHLORIDE
  13. XOLAIR [Concomitant]
     Active Substance: OMALIZUMAB

REACTIONS (4)
  - Diarrhoea [None]
  - Abnormal faeces [None]
  - Therapy cessation [None]
  - Abdominal pain upper [None]

NARRATIVE: CASE EVENT DATE: 20171208
